FAERS Safety Report 15154171 (Version 2)
Quarter: 2018Q3

REPORT INFORMATION
  Report Type: Spontaneous
  Country: US (occurrence: US)
  Receive Date: 20180717
  Receipt Date: 20180725
  Transmission Date: 20181010
  Serious: No
  Sender: FDA-Public Use
  Company Number: US-CELGENEUS-USA-20180703259

PATIENT
  Sex: Female

DRUGS (1)
  1. OTEZLA [Suspect]
     Active Substance: APREMILAST
     Indication: PSORIASIS
     Dosage: 60 MILLIGRAM
     Route: 048
     Dates: start: 20160927

REACTIONS (7)
  - Drug dose omission [Unknown]
  - Feeling abnormal [Unknown]
  - Mental impairment [Unknown]
  - Stress [Unknown]
  - Burning sensation [Unknown]
  - Psoriasis [Unknown]
  - Unevaluable event [Unknown]
